FAERS Safety Report 22341341 (Version 1)
Quarter: 2023Q2

REPORT INFORMATION
  Report Type: Other
  Country: None (occurrence: CA)
  Receive Date: 20230518
  Receipt Date: 20230518
  Transmission Date: 20230722
  Serious: Yes (Other)
  Sender: FDA-Public Use
  Company Number: CA-B.Braun Medical Inc.-2141690

PATIENT
  Age: 17 Year
  Sex: Female

DRUGS (2)
  1. CEFAZOLIN [Suspect]
     Active Substance: CEFAZOLIN
     Indication: Infection
  2. METRONIDAZOLE [Suspect]
     Active Substance: METRONIDAZOLE

REACTIONS (1)
  - Drug ineffective [Unknown]
